FAERS Safety Report 11657091 (Version 2)
Quarter: 2015Q4

REPORT INFORMATION
  Report Type: Spontaneous
  Country: US (occurrence: US)
  Receive Date: 20151023
  Receipt Date: 20151028
  Transmission Date: 20160304
  Serious: No
  Sender: FDA-Public Use
  Company Number: PHEH2015US020785

PATIENT
  Sex: Male

DRUGS (1)
  1. PROMACTA [Suspect]
     Active Substance: ELTROMBOPAG OLAMINE
     Indication: PURPURA
     Dosage: 50 MG, QD (DAILY)
     Route: 065
     Dates: start: 20150911

REACTIONS (3)
  - Off label use [Unknown]
  - Pain [Unknown]
  - Arthralgia [Unknown]
